FAERS Safety Report 6204924-4 (Version None)
Quarter: 2009Q2

REPORT INFORMATION
  Report Type: 
  Country: None (occurrence: None)
  Receive Date: 20090526
  Receipt Date: 20090511
  Transmission Date: 20091009
  Serious: Yes (Hospitalization)
  Sender: FDA-Public Use
  Company Number: 2009BI014949

PATIENT
  Age: 73 Year
  Sex: Male

DRUGS (7)
  1. ZEVALIN [Suspect]
     Indication: FOLLICLE CENTRE LYMPHOMA, FOLLICULAR GRADE I, II, III STAGE IV
     Dosage: 896 MBQ; 1X; IV
     Route: 042
     Dates: start: 20081007, end: 20081014
  2. RITUXIMAB [Concomitant]
  3. LOXONIN [Concomitant]
  4. POLARAMINE [Concomitant]
  5. CIPROXAN [Concomitant]
  6. STRONGER NEO-MINOPHAGEN [Concomitant]
  7. C P [Concomitant]

REACTIONS (1)
  - BONE MARROW FAILURE [None]
